FAERS Safety Report 18734424 (Version 1)
Quarter: 2021Q1

REPORT INFORMATION
  Report Type: Spontaneous
  Country: CN (occurrence: CN)
  Receive Date: 20210113
  Receipt Date: 20210113
  Transmission Date: 20210419
  Serious: Yes (Other)
  Sender: FDA-Public Use
  Company Number: CN-ROCHE-2744964

PATIENT
  Age: 49 Year
  Sex: Male

DRUGS (4)
  1. RALTITREXED [Concomitant]
     Active Substance: RALTITREXED
     Dates: start: 20201012
  2. OXALIPLATIN. [Concomitant]
     Active Substance: OXALIPLATIN
     Dates: start: 20201012
  3. TECENTRIQ [Suspect]
     Active Substance: ATEZOLIZUMAB
     Indication: HEPATIC CANCER
     Route: 041
     Dates: start: 20201022
  4. AVASTIN [Suspect]
     Active Substance: BEVACIZUMAB
     Indication: HEPATIC CANCER
     Route: 042
     Dates: start: 20201022

REACTIONS (11)
  - Hypertension [Unknown]
  - Gastrointestinal disorder [Unknown]
  - Intentional product use issue [Unknown]
  - White blood cell count decreased [Unknown]
  - Platelet count decreased [Unknown]
  - Off label use [Unknown]
  - Autoimmune hepatitis [Unknown]
  - Abdominal pain [Unknown]
  - Gingival bleeding [Unknown]
  - Fatigue [Unknown]
  - Anaemia [Unknown]
